FAERS Safety Report 10073903 (Version 9)
Quarter: 2014Q4

REPORT INFORMATION
  Report Type: Spontaneous
  Country: BE (occurrence: BE)
  Receive Date: 20140411
  Receipt Date: 20141113
  Transmission Date: 20150528
  Serious: Yes (Other)
  Sender: FDA-Public Use
  Company Number: PHHY2013BE148131

PATIENT
  Age: 56 Year
  Sex: Male

DRUGS (16)
  1. RANITIDINE [Concomitant]
     Active Substance: RANITIDINE\RANITIDINE HYDROCHLORIDE
     Dosage: 450 MG, DAILY
     Route: 048
  2. RANITIDINE [Concomitant]
     Active Substance: RANITIDINE\RANITIDINE HYDROCHLORIDE
     Dosage: 300 MG, DAILY
     Route: 048
     Dates: start: 20140208
  3. PEGINTRON [Concomitant]
     Active Substance: PEGINTERFERON ALFA-2B
     Dosage: 120 UG (0.3ML)
     Route: 058
     Dates: start: 20131217, end: 20131217
  4. PEGINTRON [Concomitant]
     Active Substance: PEGINTERFERON ALFA-2B
     Dosage: 120 UG, (0.5ML)
     Route: 058
     Dates: start: 20140515, end: 20140718
  5. PEGINTRON [Concomitant]
     Active Substance: PEGINTERFERON ALFA-2B
     Dosage: 120 UG, (0.5ML)
     Route: 058
     Dates: start: 20140727, end: 20141023
  6. BISOPROLOL [Concomitant]
     Active Substance: BISOPROLOL
     Dosage: 2.5 MG, DAILY
     Route: 048
  7. PEGINTRON [Concomitant]
     Active Substance: PEGINTERFERON ALFA-2B
     Indication: HEPATITIS C
     Dosage: 120 UG (0.5 ML)
     Route: 058
     Dates: start: 20131126, end: 20131217
  8. RANITIDINE [Concomitant]
     Active Substance: RANITIDINE\RANITIDINE HYDROCHLORIDE
     Indication: ABDOMINAL DISCOMFORT
     Dosage: 600 MG, DAILY
     Route: 048
     Dates: start: 20140122, end: 20140206
  9. RANITIDINE [Concomitant]
     Active Substance: RANITIDINE\RANITIDINE HYDROCHLORIDE
     Dosage: 450 MG, DAILY
     Route: 048
     Dates: start: 20140207, end: 20140207
  10. COPEGUS [Suspect]
     Active Substance: RIBAVIRIN
     Indication: HEPATITIS C
     Dosage: 1200 MG, UNK
     Dates: start: 20131126, end: 20140718
  11. VICTRELIS [Concomitant]
     Active Substance: BOCEPREVIR
     Indication: HEPATITIS C
     Dosage: 2400 MG, UNK
     Route: 048
     Dates: start: 20131225, end: 20140215
  12. COPEGUS [Suspect]
     Active Substance: RIBAVIRIN
     Dosage: 1200 MG, UNK
     Dates: start: 20140727
  13. VICTRELIS [Concomitant]
     Active Substance: BOCEPREVIR
     Dosage: 2400 MG, UNK
     Route: 048
     Dates: start: 20140216, end: 20140718
  14. VICTRELIS [Concomitant]
     Active Substance: BOCEPREVIR
     Dosage: 2400 MG, UNK
     Route: 048
     Dates: start: 20140727, end: 20141023
  15. PEGINTRON [Concomitant]
     Active Substance: PEGINTERFERON ALFA-2B
     Dosage: 120 UG, (0.4ML)
     Route: 058
     Dates: start: 20140218, end: 20140515
  16. CYMBALTA [Concomitant]
     Active Substance: DULOXETINE HYDROCHLORIDE
     Dosage: 60 MG, EVERY 2 DAYS
     Route: 048

REACTIONS (25)
  - Thrombocytopenia [Unknown]
  - Palpitations [Not Recovered/Not Resolved]
  - Headache [Not Recovered/Not Resolved]
  - Loss of consciousness [Unknown]
  - Back pain [Not Recovered/Not Resolved]
  - Oropharyngeal plaque [Recovering/Resolving]
  - Fatigue [Not Recovered/Not Resolved]
  - Anxiety [Unknown]
  - Ear infection [Recovered/Resolved]
  - Oedema peripheral [Not Recovered/Not Resolved]
  - Malaise [Recovering/Resolving]
  - Dyspepsia [Recovering/Resolving]
  - Dysgeusia [Recovering/Resolving]
  - Erythema [Not Recovered/Not Resolved]
  - Peripheral swelling [Not Recovered/Not Resolved]
  - Gastrooesophageal reflux disease [Unknown]
  - Pyrexia [Recovered/Resolved]
  - Tooth infection [Recovered/Resolved]
  - Tachycardia [Not Recovered/Not Resolved]
  - Hypertension [Not Recovered/Not Resolved]
  - Feeling abnormal [Not Recovered/Not Resolved]
  - Alopecia [Recovering/Resolving]
  - Somnolence [Not Recovered/Not Resolved]
  - Sleep disorder [Not Recovered/Not Resolved]
  - Pain in extremity [Recovering/Resolving]

NARRATIVE: CASE EVENT DATE: 201312
